FAERS Safety Report 8162415-8 (Version None)
Quarter: 2012Q1

REPORT INFORMATION
  Report Type: 
  Country: None (occurrence: None)
  Receive Date: 20120224
  Receipt Date: 20120221
  Transmission Date: 20120608
  Serious: Yes (Death, Other)
  Sender: FDA-Public Use
  Company Number: PHHY2012NL014902

PATIENT
  Age: 5 Year
  Sex: Female

DRUGS (2)
  1. METHYLPREDNISOLONE [Suspect]
     Dosage: 15 MG/KG, UNK
  2. PLATELETS [Concomitant]

REACTIONS (6)
  - CONVULSION [None]
  - HEADACHE [None]
  - BRAIN HERNIATION [None]
  - HAEMORRHAGE INTRACRANIAL [None]
  - BRAIN OEDEMA [None]
  - BLOOD PRESSURE INCREASED [None]
